FAERS Safety Report 20583749 (Version 3)
Quarter: 2024Q1

REPORT INFORMATION
  Report Type: Spontaneous
  Country: US (occurrence: US)
  Receive Date: 20220311
  Receipt Date: 20240124
  Transmission Date: 20240410
  Serious: Yes (Disabling, Other)
  Sender: FDA-Public Use
  Company Number: US-SA-SAC20220308000360

PATIENT
  Age: 38 Year
  Sex: Female

DRUGS (1)
  1. AUBAGIO [Suspect]
     Active Substance: TERIFLUNOMIDE
     Indication: Multiple sclerosis
     Dosage: 1 DF, QD
     Route: 048
     Dates: start: 20210205

REACTIONS (20)
  - Optic neuritis [Unknown]
  - Loss of personal independence in daily activities [Unknown]
  - Walking aid user [Unknown]
  - Wheelchair user [Unknown]
  - Skin weeping [Unknown]
  - Hypoaesthesia [Unknown]
  - Urinary incontinence [Unknown]
  - Visual impairment [Unknown]
  - Memory impairment [Unknown]
  - Aphasia [Unknown]
  - Disturbance in attention [Unknown]
  - Gait disturbance [Unknown]
  - Balance disorder [Unknown]
  - Skin fissures [Unknown]
  - Skin exfoliation [Unknown]
  - Dry skin [Unknown]
  - Tremor [Unknown]
  - Alopecia [Unknown]
  - Paraesthesia [Unknown]
  - Product dose omission issue [Unknown]

NARRATIVE: CASE EVENT DATE: 20220201
